FAERS Safety Report 26162420 (Version 1)
Quarter: 2025Q4

REPORT INFORMATION
  Report Type: Report from Study
  Country: US (occurrence: US)
  Receive Date: 20251216
  Receipt Date: 20251216
  Transmission Date: 20260118
  Serious: Yes (Other)
  Sender: AUROBINDO
  Company Number: US-AUROBINDO-AUR-APL-2025-061296

PATIENT
  Age: 6 Year
  Sex: Male

DRUGS (4)
  1. CEPHALEXIN [Suspect]
     Active Substance: CEPHALEXIN
     Indication: Balanoposthitis
     Dosage: UNK
     Route: 065
  2. CEPHALEXIN [Suspect]
     Active Substance: CEPHALEXIN
     Indication: Balanoposthitis
  3. DIFLUCAN [Concomitant]
     Active Substance: FLUCONAZOLE
     Indication: Balanoposthitis
     Dosage: UNK
     Route: 065
  4. DIFLUCAN [Concomitant]
     Active Substance: FLUCONAZOLE
     Indication: Balanoposthitis

REACTIONS (1)
  - Treatment failure [Unknown]
